FAERS Safety Report 10540199 (Version 1)
Quarter: 2014Q4

REPORT INFORMATION
  Report Type: Spontaneous
  Country: US (occurrence: None)
  Receive Date: 20141023
  Receipt Date: 20141023
  Transmission Date: 20150529
  Serious: Yes (Disabling)
  Sender: FDA-Public Use
  Company Number: None

PATIENT
  Age: 32 Year
  Sex: Female
  Weight: 52.16 kg

DRUGS (1)
  1. CIPROFLOXACIN 250 MG COBLAT [Suspect]
     Active Substance: CIPROFLOXACIN
     Indication: URINARY TRACT INFECTION
     Dosage: 1 PILL TWICE DAILY TAKEN BY MOUTH
     Route: 048
     Dates: start: 20141017, end: 20141017

REACTIONS (4)
  - Back pain [None]
  - Myalgia [None]
  - Skin burning sensation [None]
  - Hyperaesthesia [None]

NARRATIVE: CASE EVENT DATE: 20141017
